FAERS Safety Report 7198820-6 (Version None)
Quarter: 2010Q4

REPORT INFORMATION
  Report Type: 
  Country: None (occurrence: None)
  Receive Date: 20101227
  Receipt Date: 20101222
  Transmission Date: 20110411
  Serious: Yes (Hospitalization, Other)
  Sender: FDA-Public Use
  Company Number: DE-ABBOTT-10P-062-0679879-00

PATIENT
  Age: 77 Year
  Sex: Male
  Weight: 76 kg

DRUGS (3)
  1. KLACID FORTE TABLETS [Suspect]
     Indication: PNEUMONIA
     Route: 048
     Dates: start: 20100823, end: 20100823
  2. KLACID FORTE TABLETS [Suspect]
     Dates: start: 20100823, end: 20100828
  3. 19 UNSPECIFIED MEDICATIONS [Concomitant]
     Indication: PRODUCT USED FOR UNKNOWN INDICATION

REACTIONS (2)
  - GASTRITIS [None]
  - HEPATITIS ACUTE [None]
